FAERS Safety Report 5657922-3 (Version None)
Quarter: 2008Q1

REPORT INFORMATION
  Report Type: 
  Country: None (occurrence: None)
  Receive Date: 20080310
  Receipt Date: 20080303
  Transmission Date: 20080703
  Serious: Yes (Other)
  Sender: FDA-Public Use
  Company Number: PHRM2008FR00965

PATIENT
  Age: 41 Year
  Sex: Female

DRUGS (2)
  1. SYNTOCINON [Suspect]
     Indication: UTERINE ATONY
     Dosage: 20 IU, ONCE/SINGLE
     Route: 042
     Dates: start: 20080225, end: 20080225
  2. SYNTOCINON [Suspect]
     Dosage: 10 IU, ONCE/SINGLE
     Route: 042
     Dates: start: 20080225, end: 20080225

REACTIONS (3)
  - DRUG INEFFECTIVE [None]
  - POSTPARTUM HAEMORRHAGE [None]
  - UTERINE ATONY [None]
